FAERS Safety Report 8452585-6 (Version None)
Quarter: 2012Q2

REPORT INFORMATION
  Report Type: 
  Country: None (occurrence: None)
  Receive Date: 20120620
  Receipt Date: 20120502
  Transmission Date: 20120825
  Serious: No
  Sender: FDA-Public Use
  Company Number: US-VERTEX PHARMACEUTICALS INC.-AE-2012-005611

PATIENT
  Sex: Female
  Weight: 68.1 kg

DRUGS (8)
  1. RIBAVIRIN [Concomitant]
     Indication: HEPATITIS C
     Route: 048
     Dates: start: 20120414
  2. LEXAPRO [Concomitant]
     Route: 048
  3. INCIVEK [Suspect]
     Indication: HEPATITIS C
     Route: 048
     Dates: start: 20120414
  4. LORAZEPAM [Concomitant]
     Route: 048
  5. AMBIEN [Concomitant]
     Route: 048
  6. RANITIDINE [Concomitant]
     Route: 048
  7. PEGASYS [Concomitant]
     Indication: HEPATITIS C
     Route: 058
     Dates: start: 20120414
  8. ELAVIL [Concomitant]
     Route: 048

REACTIONS (3)
  - ASTHENIA [None]
  - RASH PAPULAR [None]
  - NAUSEA [None]
